FAERS Safety Report 5079919-7 (Version None)
Quarter: 2006Q3

REPORT INFORMATION
  Report Type: 
  Country: None (occurrence: None)
  Receive Date: 20060815
  Receipt Date: 20060731
  Transmission Date: 20061208
  Serious: Yes (Hospitalization)
  Sender: FDA-Public Use
  Company Number: US-AMGEN-STX188550

PATIENT
  Sex: Female

DRUGS (3)
  1. ENBREL [Suspect]
     Indication: JUVENILE ARTHRITIS
     Route: 058
     Dates: start: 20021205
  2. AZULFIDINE [Concomitant]
     Indication: JUVENILE ARTHRITIS
     Route: 065
     Dates: start: 20010101
  3. PLAQUENIL [Concomitant]
     Indication: JUVENILE ARTHRITIS
     Route: 065
     Dates: start: 20010101

REACTIONS (1)
  - HIP ARTHROPLASTY [None]
